FAERS Safety Report 22298296 (Version 4)
Quarter: 2023Q2

REPORT INFORMATION
  Report Type: Spontaneous
  Country: ES (occurrence: ES)
  Receive Date: 20230509
  Receipt Date: 20230606
  Transmission Date: 20230722
  Serious: Yes (Hospitalization, Other)
  Sender: FDA-Public Use
  Company Number: None

PATIENT
  Sex: Male

DRUGS (12)
  1. NEUPRO [Suspect]
     Active Substance: ROTIGOTINE
     Indication: Product used for unknown indication
     Dosage: 8 MILLIGRAM, ONCE DAILY (QD)
     Route: 062
     Dates: start: 20230413, end: 20230413
  2. NEUPRO [Suspect]
     Active Substance: ROTIGOTINE
     Dosage: 12 MILLIGRAM
     Route: 062
     Dates: start: 20230413, end: 20230413
  3. NEUPRO [Suspect]
     Active Substance: ROTIGOTINE
     Dosage: 1 DAY, UNK
     Route: 062
  4. CARBIDOPA\LEVODOPA [Suspect]
     Active Substance: CARBIDOPA\LEVODOPA
     Indication: Parkinson^s disease
     Dosage: CONTINUOUS DOSE DECREASED
     Dates: start: 202304
  5. CARBIDOPA\LEVODOPA [Suspect]
     Active Substance: CARBIDOPA\LEVODOPA
     Dosage: DECREASE THE CONTINUOUS DOSE BY 0.3 ML/H
     Dates: start: 202302, end: 202302
  6. CARBIDOPA\LEVODOPA [Suspect]
     Active Substance: CARBIDOPA\LEVODOPA
     Dosage: DOSE INCREASED
     Dates: start: 202302, end: 202302
  7. CARBIDOPA\LEVODOPA [Suspect]
     Active Substance: CARBIDOPA\LEVODOPA
     Dosage: DOSE UPDATED
     Dates: start: 20230326, end: 202304
  8. CARBIDOPA\LEVODOPA [Suspect]
     Active Substance: CARBIDOPA\LEVODOPA
     Dosage: DOSE MODIFIED
     Dates: start: 20200206, end: 202302
  9. CARBIDOPA\LEVODOPA [Suspect]
     Active Substance: CARBIDOPA\LEVODOPA
     Dosage: CONTINUOUS DOSE DECREASED BY 0,2 ML/H
     Dates: start: 202302, end: 202303
  10. CARBIDOPA\LEVODOPA [Suspect]
     Active Substance: CARBIDOPA\LEVODOPA
     Dosage: CONTINUOUS DOSE IS DECREASED
     Dates: start: 202305
  11. CARBIDOPA\LEVODOPA [Suspect]
     Active Substance: CARBIDOPA\LEVODOPA
     Dosage: CONTINUOUS DOSE DECREASED
     Dates: start: 202304, end: 202305
  12. CARBIDOPA\LEVODOPA [Suspect]
     Active Substance: CARBIDOPA\LEVODOPA
     Dosage: CONTINUOUS DOSE DECREASED
     Dates: start: 202305, end: 202305

REACTIONS (36)
  - Implantable defibrillator insertion [Unknown]
  - Pulmonary oedema [Recovered/Resolved]
  - Drowning [Recovered/Resolved]
  - Parkinson^s disease [Unknown]
  - Anxiety [Recovered/Resolved]
  - Chapped lips [Recovered/Resolved]
  - Malaise [Recovered/Resolved]
  - Skin wound [Recovered/Resolved]
  - Mood altered [Unknown]
  - Blood disorder [Unknown]
  - Mobility decreased [Recovered/Resolved]
  - Wound haemorrhage [Not Recovered/Not Resolved]
  - Fall [Not Recovered/Not Resolved]
  - Fear of falling [Recovered/Resolved]
  - Musculoskeletal stiffness [Recovered/Resolved]
  - Joint range of motion decreased [Recovered/Resolved]
  - Musculoskeletal disorder [Not Recovered/Not Resolved]
  - Gait inability [Recovered/Resolved]
  - Balance disorder [Recovered/Resolved]
  - Emotional distress [Recovered/Resolved]
  - Movement disorder [Recovered/Resolved]
  - Gait disturbance [Recovered/Resolved]
  - Dyskinesia [Recovered/Resolved]
  - Respiratory tract infection [Unknown]
  - Contusion [Not Recovered/Not Resolved]
  - Unevaluable event [Unknown]
  - Foot deformity [Recovered/Resolved]
  - Skin discolouration [Unknown]
  - Disease progression [Unknown]
  - Malaise [Recovered/Resolved]
  - Gait inability [Unknown]
  - Musculoskeletal stiffness [Recovered/Resolved]
  - Musculoskeletal disorder [Not Recovered/Not Resolved]
  - Gait disturbance [Recovered/Resolved]
  - Balance disorder [Unknown]
  - Therapeutic product effect incomplete [Unknown]

NARRATIVE: CASE EVENT DATE: 20200101
